FAERS Safety Report 12898203 (Version 1)
Quarter: 2016Q4

REPORT INFORMATION
  Report Type: Spontaneous
  Country: US (occurrence: US)
  Receive Date: 20161031
  Receipt Date: 20161031
  Transmission Date: 20170207
  Serious: Yes (Other)
  Sender: FDA-Public Use
  Company Number: US-JNJFOC-20161025110

PATIENT
  Sex: Female

DRUGS (1)
  1. TOPAMAX [Suspect]
     Active Substance: TOPIRAMATE
     Indication: MIGRAINE PROPHYLAXIS
     Route: 048
     Dates: end: 2016

REACTIONS (3)
  - Angle closure glaucoma [Recovered/Resolved]
  - Lyme disease [Unknown]
  - Encephalitis [Unknown]

NARRATIVE: CASE EVENT DATE: 201604
